FAERS Safety Report 14505648 (Version 2)
Quarter: 2018Q2

REPORT INFORMATION
  Report Type: Spontaneous
  Country: ES (occurrence: ES)
  Receive Date: 20180208
  Receipt Date: 20180514
  Transmission Date: 20180711
  Serious: Yes (Other)
  Sender: FDA-Public Use
  Company Number: ES-PFIZER INC-2018055712

PATIENT
  Age: 58 Year
  Sex: Female

DRUGS (14)
  1. BEMIPARIN [Concomitant]
     Active Substance: BEMIPARIN
     Dosage: UNK
     Dates: start: 201501
  2. METAMIZOL /06276702/ [Concomitant]
     Active Substance: METAMIZOLE
     Dosage: UNK
     Dates: start: 2014
  3. CALCIUM CARBONATE. [Concomitant]
     Active Substance: CALCIUM CARBONATE
     Dosage: UNK
     Dates: start: 201501
  4. LACTULOSA [Concomitant]
     Active Substance: LACTULOSE
     Dosage: UNK
     Dates: start: 201501, end: 201502
  5. BEMIPARIN [Concomitant]
     Active Substance: BEMIPARIN
     Dosage: UNK
     Dates: start: 201503
  6. BROMAZEPAM [Concomitant]
     Active Substance: BROMAZEPAM
     Dosage: UNK
     Dates: start: 2015
  7. AMITRIPTILINA [Concomitant]
     Active Substance: AMITRIPTYLINE HYDROCHLORIDE
     Dosage: UNK
     Dates: start: 2014
  8. CALCIUM CARBONATE/COLECALCIFEROL [Concomitant]
     Dosage: UNK
     Dates: start: 201501
  9. PRISTIQ EXTENDED-RELEASE [Suspect]
     Active Substance: DESVENLAFAXINE SUCCINATE
     Indication: ARTHRALGIA
     Dosage: 50 MG, EVERY 3 DAYS
     Route: 048
     Dates: start: 20131114, end: 20151101
  10. AMITRIPTILINA [Concomitant]
     Active Substance: AMITRIPTYLINE HYDROCHLORIDE
     Dosage: UNK
     Dates: start: 201501
  11. AMOXICILINA + ACIDO CLAVULANICO [Concomitant]
     Active Substance: AMOXICILLIN\CLAVULANIC ACID
     Dosage: UNK
     Dates: start: 201501, end: 201502
  12. METAMIZOL /06276702/ [Concomitant]
     Active Substance: METAMIZOLE
     Dosage: UNK
     Dates: start: 201501
  13. BROMAZEPAM [Concomitant]
     Active Substance: BROMAZEPAM
     Dosage: UNK
     Dates: start: 2014
  14. OMEPRAZOLE. [Concomitant]
     Active Substance: OMEPRAZOLE
     Dosage: UNK
     Dates: start: 2015, end: 201712

REACTIONS (3)
  - Cognitive disorder [Recovered/Resolved with Sequelae]
  - Disorientation [Recovered/Resolved with Sequelae]
  - Product use in unapproved indication [Unknown]

NARRATIVE: CASE EVENT DATE: 20150115
